FAERS Safety Report 6164667-2 (Version None)
Quarter: 2009Q2

REPORT INFORMATION
  Report Type: 
  Country: None (occurrence: None)
  Receive Date: 20090423
  Receipt Date: 20090402
  Transmission Date: 20091009
  Serious: Yes (Other)
  Sender: FDA-Public Use
  Company Number: US-ASTRAZENECA-2009UW08374

PATIENT
  Age: 72 Year
  Sex: Female
  Weight: 59 kg

DRUGS (6)
  1. CRESTOR [Suspect]
     Dosage: 10 MG
     Route: 048
     Dates: start: 20090101, end: 20090101
  2. CRESTOR [Suspect]
     Dosage: 20 MG
     Route: 048
     Dates: start: 20090101, end: 20090201
  3. CRESTOR [Suspect]
     Dosage: 10 MG
     Route: 048
     Dates: start: 20090201, end: 20090301
  4. DIOVAN [Concomitant]
     Indication: HYPERTENSION
  5. ATENOLOL [Concomitant]
     Indication: HYPERTENSION
  6. METHYLPREDNISOLONE 4MG TAB [Concomitant]
     Indication: TEMPORAL ARTERITIS

REACTIONS (7)
  - ABDOMINAL PAIN [None]
  - DIARRHOEA [None]
  - HEADACHE [None]
  - PAIN IN EXTREMITY [None]
  - RETCHING [None]
  - SHOULDER OPERATION [None]
  - VOMITING [None]
